FAERS Safety Report 7280708-3 (Version None)
Quarter: 2011Q1

REPORT INFORMATION
  Report Type: 
  Country: None (occurrence: None)
  Receive Date: 20110208
  Receipt Date: 20110128
  Transmission Date: 20110831
  Serious: Yes (Hospitalization)
  Sender: FDA-Public Use
  Company Number: B0696477A

PATIENT
  Sex: Female

DRUGS (2)
  1. FOTEMUSTINE [Suspect]
     Indication: MALIGNANT MELANOMA
     Route: 042
     Dates: start: 20101220, end: 20101220
  2. ZOPHREN [Suspect]
     Dosage: 8MG TWICE PER DAY
     Route: 048
     Dates: start: 20101220, end: 20101223

REACTIONS (3)
  - RASH MACULAR [None]
  - TOXIC SKIN ERUPTION [None]
  - RASH PAPULAR [None]
